FAERS Safety Report 26126032 (Version 1)
Quarter: 2025Q4

REPORT INFORMATION
  Report Type: Spontaneous
  Country: EU (occurrence: EU)
  Receive Date: 20251205
  Receipt Date: 20251205
  Transmission Date: 20260118
  Serious: Yes (Other)
  Sender: TEVA
  Company Number: None

PATIENT
  Age: 29 Year
  Sex: Female
  Weight: 60 kg

DRUGS (2)
  1. HYDROCORTISONE [Suspect]
     Active Substance: HYDROCORTISONE
     Indication: Hyperemesis gravidarum
     Dosage: 1 X 2 TABLETS PER DAY; HYDROCORTISON TEVA TABLET FILM COVER 20MG
     Route: 048
     Dates: start: 20251031, end: 20251101
  2. ZOFRAN [Concomitant]
     Active Substance: ONDANSETRON HYDROCHLORIDE
     Indication: Product used for unknown indication
     Dosage: SMELTTABLET
     Route: 048

REACTIONS (4)
  - Vomiting [Recovered/Resolved]
  - Maternal exposure during pregnancy [Unknown]
  - Product substitution issue [Unknown]
  - Product coating issue [Recovered/Resolved]
